FAERS Safety Report 4656407-0 (Version None)
Quarter: 2005Q2

REPORT INFORMATION
  Report Type: 
  Country: None (occurrence: None)
  Receive Date: 20050505
  Receipt Date: 20050422
  Transmission Date: 20051028
  Serious: Yes (Hospitalization)
  Sender: FDA-Public Use
  Company Number: 2005RL000047

PATIENT
  Age: 58 Year
  Sex: Female

DRUGS (5)
  1. ISRADIPINE [Suspect]
     Indication: HYPERTENSION
     Dosage: 5 MG; QD; PO
     Route: 048
     Dates: end: 20010101
  2. CLARITHROMYCIN [Suspect]
     Indication: PNEUMONIA
     Dosage: 500 MG; QD
     Dates: end: 20010101
  3. ACETYLCYSTEINE [Concomitant]
  4. ATENOLOL [Concomitant]
  5. CHLOROQUINE PHOSPHATE [Concomitant]

REACTIONS (17)
  - ASTHENIA [None]
  - ATRIAL FLUTTER [None]
  - BUNDLE BRANCH BLOCK RIGHT [None]
  - DIARRHOEA [None]
  - DRUG INTERACTION [None]
  - DYSARTHRIA [None]
  - HEPATIC ENCEPHALOPATHY [None]
  - HEPATIC FAILURE [None]
  - HEPATIC NECROSIS [None]
  - HEPATOMEGALY [None]
  - HEPATOTOXICITY [None]
  - MALAISE [None]
  - METABOLIC ACIDOSIS [None]
  - NAUSEA [None]
  - OEDEMA PERIPHERAL [None]
  - PNEUMONIA [None]
  - PULMONARY EMBOLISM [None]
